APPROVED DRUG PRODUCT: BUPIVACAINE LIPOSOME
Active Ingredient: BUPIVACAINE
Strength: 266MG/20ML (13.3MG/ML)
Dosage Form/Route: INJECTABLE, LIPOSOMAL;INJECTION
Application: A214348 | Product #002
Applicant: JIANGSU HENGRUI PHARMACEUTICALS CO LTD
Approved: Jul 1, 2024 | RLD: No | RS: No | Type: DISCN